FAERS Safety Report 24057783 (Version 1)
Quarter: 2024Q3

REPORT INFORMATION
  Report Type: Spontaneous
  Country: GB (occurrence: GB)
  Receive Date: 20240707
  Receipt Date: 20240707
  Transmission Date: 20241017
  Serious: Yes (Hospitalization, Other)
  Sender: DR REDDYS
  Company Number: None

PATIENT
  Age: 75 Year

DRUGS (30)
  1. OLANZAPINE [Suspect]
     Active Substance: OLANZAPINE
     Indication: Product used for unknown indication
  2. VENLAFAXINE [Suspect]
     Active Substance: VENLAFAXINE HYDROCHLORIDE
     Indication: Product used for unknown indication
     Dosage: 75 MG TABLETS ONE TO BE TAKEN IN THE MORNING AND TWO TO BE TAKEN AT NIGHT
  3. VENLAFAXINE [Suspect]
     Active Substance: VENLAFAXINE HYDROCHLORIDE
     Dosage: 75 MG TABLETS ONE TO BE TAKEN IN THE MORNING AND TWO TO BE TAKEN AT NIGHT
  4. MOMETASONE [Concomitant]
     Active Substance: MOMETASONE
     Indication: Product used for unknown indication
     Dosage: APPLY THINLY EVERY MORNING
  5. NYSTATIN [Concomitant]
     Active Substance: NYSTATIN
     Indication: Product used for unknown indication
     Dosage: 1 ML TO BE DROPPED INTO THE MOUTH FOUR?TIMES A DAY.? 100,000 UNITS/ ML ORAL SUSPENSION
  6. CETIRIZINE [Concomitant]
     Active Substance: CETIRIZINE HYDROCHLORIDE
     Indication: Product used for unknown indication
  7. MONTELUKAST [Concomitant]
     Active Substance: MONTELUKAST SODIUM
     Indication: Product used for unknown indication
     Dosage: NIGHT
  8. PREGABALIN [Concomitant]
     Active Substance: PREGABALIN
     Indication: Product used for unknown indication
  9. SENNA [Concomitant]
     Active Substance: SENNA LEAF\SENNOSIDES\SENNOSIDES A AND B
     Indication: Product used for unknown indication
     Dosage: SENNA 7.5 MG TABLETS TWO TO BE TAKEN AT NIGHT
  10. Zerobase [Concomitant]
     Indication: Product used for unknown indication
     Dosage: USE OFTEN AS POSSIBLE TO MOISTURISE
  11. LANOLIN\LIGHT MINERAL OIL\PARAFFIN [Concomitant]
     Active Substance: LANOLIN\LIGHT MINERAL OIL\PARAFFIN
     Indication: Product used for unknown indication
     Dosage: AS DIRECTED
  12. Micralax [Concomitant]
     Indication: Product used for unknown indication
     Dosage: ADMINISTER THE CONTENTS OF ONE MICRO-ENEMA RECTALLY AS DIRECTED DAILY?MICRO-ENEMA 5 ML
     Route: 054
  13. CALCIUM CARBONATE\SODIUM ALGINATE\SODIUM BICARBONATE [Concomitant]
     Active Substance: CALCIUM CARBONATE\SODIUM ALGINATE\SODIUM BICARBONATE
     Indication: Product used for unknown indication
     Dosage: 10-20 ML TO BE TAKEN AFTER MEALS AND AT BEDTIME WHEN?REQUIRED
  14. ALBUTEROL [Concomitant]
     Active Substance: ALBUTEROL
     Indication: Product used for unknown indication
     Dosage: ONE OR TWO PUFFS TO BE INHALED UP TO FOUR TIMES A DAY VIA SPACER DEVICE?100 MICROGRAMS / DOSE INHALE
     Route: 055
  15. HYDROMOL [Concomitant]
     Indication: Product used for unknown indication
     Dosage: EVERY 12 HOURS AT 8 AM AND 8 PM FOR 28 DAYS AS DIRECTED BY?HOSPITAL
  16. MORPHINE [Concomitant]
     Active Substance: MORPHINE
     Indication: Product used for unknown indication
  17. DERMOL [Concomitant]
     Active Substance: BENZALKONIUM CHLORIDE\CHLORHEXIDINE HYDROCHLORIDE\ISOPROPYL MYRISTATE\PARAFFIN
     Indication: Product used for unknown indication
     Dosage: APPLY TWICE A DAY MORNING AND NIGHT WHEN REQUIRED AND USE?AS A SOAP SUBSTITUTE?LOTION
  18. EDOXABAN [Concomitant]
     Active Substance: EDOXABAN
     Indication: Product used for unknown indication
     Dosage: MORNING
  19. FAMOTIDINE [Concomitant]
     Active Substance: FAMOTIDINE
     Indication: Product used for unknown indication
     Dosage: AT NIGHT
  20. CALCIUM\CHOLECALCIFEROL [Concomitant]
     Active Substance: CALCIUM\CHOLECALCIFEROL
     Indication: Product used for unknown indication
  21. FLUTICASONE PROPIONATE [Concomitant]
     Active Substance: FLUTICASONE PROPIONATE
     Indication: Product used for unknown indication
     Dosage: ONE SPRAY TO BE USED IN EACH NOSTRIL ONCE A DAY? 50 MICROGRAMS / DOSE NASAL SPRAY
     Route: 045
  22. NOVORAPID [Concomitant]
     Active Substance: INSULIN ASPART
     Indication: Product used for unknown indication
     Dosage: ASD BY DIABETIC SPECIALIST NURSE SC 10,8,6 WITH MEALS?100 UNITS / ML SOLUTION FOR INJECTION 3 ML PRE
     Route: 058
  23. PROMETHAZINE HYDROCHLORIDE [Concomitant]
     Active Substance: PROMETHAZINE HYDROCHLORIDE
     Indication: Product used for unknown indication
     Dosage: 25 MG TABLETS 1 OR 2 TO BE TAKEN AT NIGHT
  24. POLYETHYLENE GLYCOLS [Concomitant]
     Active Substance: POLYETHYLENE GLYCOLS
     Indication: Product used for unknown indication
     Dosage: DISSOLVE CONTENTS OF ONE SACHET IN HALF A GLASS ( 125 ML) OF WATER AND TAKE TWICE EACH DAY?COMPOUND
  25. NITROGLYCERIN [Concomitant]
     Active Substance: NITROGLYCERIN
     Indication: Product used for unknown indication
     Dosage: SPRAY ONE OR TWO DOSES UNDER TONGUE AND THEN CLOSE MOUTH AS DIRECTED?400 MICROGRAMS / DOSE PUMP SUBL
     Route: 060
  26. ESTRIOL [Concomitant]
     Active Substance: ESTRIOL
     Indication: Product used for unknown indication
     Dosage: TWICE WEEKLY FOR UP TO 3 MTHS?WITH APPLICATOR
     Route: 067
  27. TRESIBA [Concomitant]
     Active Substance: INSULIN DEGLUDEC
     Indication: Product used for unknown indication
     Dosage: ACCORDING TO REQUIREMENTS SC 16 UNIT EVENING X OP N? 200 UNITS / ML SOLUTION FOR INJECTION 3 ML PRE-
     Route: 058
  28. DOCUSATE [Concomitant]
     Active Substance: DOCUSATE
     Indication: Product used for unknown indication
  29. BECLOMETHASONE DIPROPIONATE\FORMOTEROL FUMARATE\GLYCOPYRROLATE [Concomitant]
     Active Substance: BECLOMETHASONE DIPROPIONATE\FORMOTEROL FUMARATE\GLYCOPYRROLATE
     Indication: Product used for unknown indication
     Dosage: TWO PUFFS TO BE INHALED TWICE A DAY X 92 DOSES VIA SPACER? 172 / 5 / 9 MICROGRAMS / DOSE INHALER
     Route: 055
  30. ACETAMINOPHEN [Concomitant]
     Active Substance: ACETAMINOPHEN
     Indication: Product used for unknown indication
     Dosage: ONE OR TWO TO BE TAKEN FOUR TIMES DAILY AS?REQUIRED

REACTIONS (1)
  - Hypertonia [Unknown]
